FAERS Safety Report 9258332 (Version 2)
Quarter: 2014Q1

REPORT INFORMATION
  Report Type: Spontaneous
  Country: US (occurrence: US)
  Receive Date: 20130426
  Receipt Date: 20140110
  Transmission Date: 20141002
  Serious: Yes (Hospitalization)
  Sender: FDA-Public Use
  Company Number: US-ASTRAZENECA-2013SE27492

PATIENT
  Age: 54 Year
  Sex: Female
  Weight: 112 kg

DRUGS (19)
  1. NEXIUM [Suspect]
     Indication: GASTROOESOPHAGEAL REFLUX DISEASE
     Route: 048
     Dates: start: 2000
  2. NEXIUM [Suspect]
     Indication: GASTROOESOPHAGEAL REFLUX DISEASE
     Route: 048
     Dates: start: 20080407
  3. PRILOSEC [Suspect]
     Dosage: TWO TIMES DAILY
     Route: 048
  4. PREVACID [Concomitant]
     Dates: start: 2000
  5. TAGAMET [Concomitant]
     Dosage: AS NEEDED
  6. PEPCID [Concomitant]
     Dosage: ONE DAILY
  7. AZID [Concomitant]
     Dosage: ONE DAILY
     Dates: start: 1992
  8. OGEN [Concomitant]
  9. PROVERA [Concomitant]
  10. ESTROGEN [Concomitant]
  11. SIMVASTATIN [Concomitant]
     Dates: start: 20081001
  12. NAPROXEN [Concomitant]
     Dates: start: 20080702
  13. LISINOPRIL [Concomitant]
     Dates: start: 20080702
  14. ZOLPIDEM [Concomitant]
     Dates: start: 20080702
  15. LORATADINE [Concomitant]
     Dates: start: 20080603
  16. CLONAZEPAM [Concomitant]
     Dates: start: 20080702
  17. GABAPENTIN [Concomitant]
     Dates: start: 20080408
  18. LEXAPRO [Concomitant]
     Dates: start: 20080804
  19. MELOXICAM [Concomitant]
     Dates: start: 20100824

REACTIONS (15)
  - Back disorder [Unknown]
  - Hernia [Unknown]
  - Osteoporosis [Unknown]
  - Bone disorder [Unknown]
  - Multiple fractures [Unknown]
  - Osteopenia [Not Recovered/Not Resolved]
  - Ankle fracture [Not Recovered/Not Resolved]
  - Foot fracture [Not Recovered/Not Resolved]
  - Type 2 diabetes mellitus [Unknown]
  - Poor quality sleep [Unknown]
  - Calcium deficiency [Unknown]
  - Vitamin D deficiency [Unknown]
  - Exostosis [Unknown]
  - Fall [Unknown]
  - Depression [Unknown]
